FAERS Safety Report 9264228 (Version 2)
Quarter: 2013Q2

REPORT INFORMATION
  Report Type: Spontaneous
  Country: US (occurrence: US)
  Receive Date: 20130430
  Receipt Date: 20130510
  Transmission Date: 20140414
  Serious: Yes (Other)
  Sender: FDA-Public Use
  Company Number: CHPA2013US007109

PATIENT
  Age: 78 Year
  Sex: Female

DRUGS (3)
  1. BENEFIBER STICK PACKS [Suspect]
     Indication: IRRITABLE BOWEL SYNDROME
     Dosage: 1 DF, TID
     Route: 048
  2. BENEFIBER STICK PACKS [Suspect]
     Indication: NUTRITIONAL SUPPLEMENTATION
  3. NASONEX [Concomitant]
     Dosage: UNK, UNK

REACTIONS (6)
  - Bronchitis [Recovered/Resolved]
  - Abdominal distension [Recovering/Resolving]
  - Endotracheal intubation complication [Unknown]
  - Throat irritation [Recovered/Resolved]
  - Therapeutic response unexpected [Unknown]
  - Off label use [Unknown]
